FAERS Safety Report 8065257-7 (Version None)
Quarter: 2012Q1

REPORT INFORMATION
  Report Type: 
  Country: None (occurrence: None)
  Receive Date: 20120124
  Receipt Date: 20120116
  Transmission Date: 20120608
  Serious: Yes (Hospitalization)
  Sender: FDA-Public Use
  Company Number: US-US-EMD SERONO, INC.-7012087

PATIENT
  Sex: Male
  Weight: 116 kg

DRUGS (5)
  1. LORTAB [Concomitant]
     Indication: PAIN
     Dosage: 10/500
     Route: 048
  2. ALCOHOL WIPE WITH LIDOCAINE [Concomitant]
     Indication: PAIN
  3. RAZADYNE ER [Concomitant]
     Route: 048
  4. REBIF [Suspect]
     Indication: MULTIPLE SCLEROSIS
     Route: 058
     Dates: start: 20081125
  5. XANAX [Concomitant]
     Indication: ANXIETY
     Route: 048

REACTIONS (4)
  - INFLUENZA LIKE ILLNESS [None]
  - INJECTION SITE ERYTHEMA [None]
  - BONE PAIN [None]
  - INTERVERTEBRAL DISC PROTRUSION [None]
